FAERS Safety Report 10757994 (Version 1)
Quarter: 2015Q1

REPORT INFORMATION
  Report Type: Spontaneous
  Country: US (occurrence: US)
  Receive Date: 20150203
  Receipt Date: 20150203
  Transmission Date: 20150721
  Serious: No
  Sender: FDA-Public Use
  Company Number: US-TEVA-512967USA

PATIENT
  Sex: Female
  Weight: 44.49 kg

DRUGS (2)
  1. MIRTAZAPINE. [Suspect]
     Active Substance: MIRTAZAPINE
     Indication: FEAR
  2. MIRTAZAPINE. [Suspect]
     Active Substance: MIRTAZAPINE
     Indication: PANIC DISORDER
     Dosage: 60 MILLIGRAM DAILY;
     Route: 048

REACTIONS (5)
  - Adverse event [Unknown]
  - Stomatitis [Not Recovered/Not Resolved]
  - Blister [Not Recovered/Not Resolved]
  - Product use issue [Unknown]
  - Fungal infection [Not Recovered/Not Resolved]
